FAERS Safety Report 8234917-7 (Version None)
Quarter: 2012Q1

REPORT INFORMATION
  Report Type: 
  Country: None (occurrence: None)
  Receive Date: 20120326
  Receipt Date: 20120315
  Transmission Date: 20120608
  Serious: No
  Sender: FDA-Public Use
  Company Number: US-B.I. PHARMACEUTICALS,INC./RIDGEFIELD-2011-BP-06312BP

PATIENT
  Sex: Female

DRUGS (13)
  1. METOPROLOL SUCCINATE [Concomitant]
     Indication: HYPERTENSION
  2. DIGOXIN [Concomitant]
     Indication: HEART RATE ABNORMAL
  3. ASPIRIN [Concomitant]
     Indication: CORONARY ARTERY DISEASE
  4. PRESTIQUE [Concomitant]
     Indication: DEPRESSION
  5. PRADAXA [Suspect]
     Dosage: 150 MG
     Route: 048
     Dates: start: 20120310
  6. FUROSEMIDE [Concomitant]
     Indication: CARDIAC FAILURE CONGESTIVE
  7. KLOR-CON [Concomitant]
     Indication: ELECTROLYTE SUBSTITUTION THERAPY
  8. ISOSORBIDE DINITRATE [Concomitant]
     Indication: CORONARY ARTERY DISEASE
  9. PRADAXA [Suspect]
     Indication: ATRIAL FIBRILLATION
     Dosage: 300 MG
     Route: 048
     Dates: start: 20110201, end: 20120309
  10. FELODIPINE [Concomitant]
     Indication: HYPERTENSION
  11. SIMVASTATIN [Concomitant]
     Indication: BLOOD CHOLESTEROL INCREASED
  12. DIGOXIN [Concomitant]
     Indication: CARDIAC FAILURE CONGESTIVE
  13. ISOSORBIDE DINITRATE [Concomitant]
     Indication: ANGINA PECTORIS

REACTIONS (4)
  - DYSPEPSIA [None]
  - NAUSEA [None]
  - RENAL DISORDER [None]
  - URINARY TRACT INFECTION [None]
